FAERS Safety Report 5717023-2 (Version None)
Quarter: 2008Q2

REPORT INFORMATION
  Report Type: 
  Country: None (occurrence: None)
  Receive Date: 20080424
  Receipt Date: 20080414
  Transmission Date: 20081010
  Serious: Yes (Hospitalization, Disabling, Other)
  Sender: FDA-Public Use
  Company Number: US-PFIZER INC-2006096939

PATIENT
  Sex: Male
  Weight: 108.9 kg

DRUGS (4)
  1. CELEBREX [Suspect]
     Indication: JOINT INJURY
  2. CELEBREX [Suspect]
  3. BEXTRA [Suspect]
     Indication: JOINT INJURY
  4. BEXTRA [Suspect]

REACTIONS (3)
  - ACUTE MYOCARDIAL INFARCTION [None]
  - BIPOLAR I DISORDER [None]
  - JOINT INJURY [None]
